FAERS Safety Report 5228847-2 (Version None)
Quarter: 2007Q1

REPORT INFORMATION
  Report Type: 
  Country: None (occurrence: None)
  Receive Date: 20070205
  Receipt Date: 20070124
  Transmission Date: 20070707
  Serious: Yes (Hospitalization, Other)
  Sender: FDA-Public Use
  Company Number: PHHO2007VE01806

PATIENT
  Age: 42 Year
  Sex: Female

DRUGS (3)
  1. ZELMAC / HTF 919A [Suspect]
     Indication: IRRITABLE BOWEL SYNDROME
     Dosage: 6 MG, BID
     Route: 048
     Dates: start: 20010101
  2. DOLOMAX [Suspect]
     Route: 042
     Dates: end: 20070109
  3. CATAFLAM [Suspect]
     Dosage: 100 MG, QD
     Route: 048
     Dates: end: 20070109

REACTIONS (9)
  - ABDOMINAL DISCOMFORT [None]
  - ABDOMINAL DISTENSION [None]
  - DEPRESSION [None]
  - HEPATOMEGALY [None]
  - MUSCULOSKELETAL CHEST PAIN [None]
  - MUSCULOSKELETAL DISCOMFORT [None]
  - NEURECTOMY [None]
  - NEUROMA [None]
  - UPPER RESPIRATORY TRACT INFECTION [None]
